FAERS Safety Report 6419616-6 (Version None)
Quarter: 2009Q4

REPORT INFORMATION
  Report Type: 
  Country: None (occurrence: None)
  Receive Date: 20091013
  Receipt Date: 20090608
  Transmission Date: 20100525
  Serious: Yes (Other)
  Sender: FDA-Public Use
  Company Number: 1000005381

PATIENT
  Age: 55 Year
  Sex: Female

DRUGS (12)
  1. LEXAPRO [Suspect]
     Indication: DEPRESSION
     Dosage: 20 MG (20 MG, 1 IN 1 D), ORAL
     Route: 048
     Dates: start: 20050101
  2. TRILEPTAL [Suspect]
     Indication: BIPOLAR DISORDER
     Dosage: 600 MG (600 MG), ORAL
     Route: 048
     Dates: start: 20050101
  3. GEODON [Concomitant]
  4. NEURONTIN [Concomitant]
  5. TRAZODONE HCL [Concomitant]
  6. VALIUM [Concomitant]
  7. ACIPHEX [Concomitant]
  8. MARINOL [Concomitant]
  9. MIRALAX [Concomitant]
  10. BONIVA [Concomitant]
  11. ENABLEX [Concomitant]
  12. COPAXONE [Concomitant]

REACTIONS (1)
  - INAPPROPRIATE ANTIDIURETIC HORMONE SECRETION [None]
